FAERS Safety Report 9473685 (Version 1)
Quarter: 2013Q3

REPORT INFORMATION
  Report Type: Spontaneous
  Country: US (occurrence: US)
  Receive Date: 20130823
  Receipt Date: 20130823
  Transmission Date: 20140515
  Serious: No
  Sender: FDA-Public Use
  Company Number: US-BRISTOL-MYERS SQUIBB COMPANY-16895617

PATIENT
  Sex: Male

DRUGS (2)
  1. SPRYCEL [Suspect]
     Dosage: DOSE WAS LOWERED FROM 100 MG TO 70 MG DAILY.
  2. ISONIAZID [Suspect]

REACTIONS (1)
  - Hepatic enzyme increased [Unknown]
